FAERS Safety Report 17233114 (Version 1)
Quarter: 2020Q1

REPORT INFORMATION
  Report Type: Spontaneous
  Country: US (occurrence: US)
  Receive Date: 20200104
  Receipt Date: 20200104
  Transmission Date: 20200409
  Serious: No
  Sender: FDA-Public Use
  Company Number: US-TEVA-2019-US-1162099

PATIENT

DRUGS (1)
  1. TOPOSAR [Suspect]
     Active Substance: ETOPOSIDE
     Dosage: DOSE: 700 MG PER 1000 ML BAG IN TWO DIVIDED DOSES.
     Route: 065

REACTIONS (1)
  - Product preparation error [Unknown]
